FAERS Safety Report 24603387 (Version 1)
Quarter: 2024Q4

REPORT INFORMATION
  Report Type: Spontaneous
  Country: US (occurrence: None)
  Receive Date: 20241109
  Receipt Date: 20241109
  Transmission Date: 20250115
  Serious: No
  Sender: Public
  Company Number: None

PATIENT
  Age: 47 Year
  Sex: Female
  Weight: 63.9 kg

DRUGS (10)
  1. AJOVY [Suspect]
     Active Substance: FREMANEZUMAB-VFRM
     Indication: Migraine
     Dosage: OTHER FREQUENCY : EVERY 30 DAYS;?
     Route: 058
     Dates: start: 20240628, end: 20240928
  2. LOESTRIN [Concomitant]
  3. POTASSIUM CITRATE [Concomitant]
  4. HCTZ [Concomitant]
  5. RIZATRIPTAN [Concomitant]
     Active Substance: RIZATRIPTAN
  6. VITAMIN C [Concomitant]
     Active Substance: ASCORBIC ACID
  7. VITAMIN D NOS [Concomitant]
     Active Substance: CHOLECALCIFEROL\ERGOCALCIFEROL
  8. MAGNESIUM [Concomitant]
     Active Substance: MAGNESIUM
  9. RIBOFLAVIN [Concomitant]
     Active Substance: RIBOFLAVIN
  10. COENZYME Q10 [Concomitant]
     Active Substance: DIETARY SUPPLEMENT\UBIDECARENONE

REACTIONS (2)
  - Constipation [None]
  - Abdominal distension [None]

NARRATIVE: CASE EVENT DATE: 20240901
